FAERS Safety Report 9255844 (Version 3)
Quarter: 2013Q3

REPORT INFORMATION
  Report Type: Spontaneous
  Country: US (occurrence: US)
  Receive Date: 20130425
  Receipt Date: 20130731
  Transmission Date: 20140515
  Serious: Yes (Other)
  Sender: FDA-Public Use
  Company Number: US-PFIZER INC-2013129222

PATIENT
  Age: 65 Year
  Sex: Female
  Weight: 99.77 kg

DRUGS (16)
  1. LYRICA [Suspect]
     Indication: FIBROMYALGIA
     Dosage: 150 MG, 2X/DAY
     Route: 048
  2. LASIX [Concomitant]
     Dosage: 80 MG, 1X/DAY
  3. LOSARTAN [Concomitant]
     Dosage: 50 MG, 1X/DAY
  4. PROPRANOLOL [Concomitant]
     Dosage: 20MG IN THE MORNING AND 40MG IN THE EVENING
  5. RANITIDINE [Concomitant]
     Dosage: 300 MG, 2X/DAY
  6. CALCIUM CITRATE [Concomitant]
     Dosage: UNK, 2X/DAY
  7. FISH OIL [Concomitant]
     Dosage: UNK, 1X/DAY
  8. KLONOPIN [Concomitant]
     Dosage: 2 MG, 1X/DAY
  9. CELEXA [Concomitant]
     Dosage: 50 MG, 2X/DAY
  10. LEVOTHYROXINE [Concomitant]
     Dosage: 150 UG, 1X/DAY
  11. TOPROL XL [Concomitant]
     Dosage: UNK, 1X/DAY
  12. VITAMIN B COMPLEX [Concomitant]
     Dosage: UNK, 1X/DAY
  13. ZYRTEC [Concomitant]
     Dosage: 10 MG, 2X/DAY
  14. NASONEX [Concomitant]
     Indication: ALLERGY TO PLANTS
     Dosage: UNK, 1X/DAY
     Route: 045
  15. KLOR-CON [Concomitant]
     Dosage: 40 MEQ (TWO TABLETS OF 20MEQ), 2X/DAY
  16. MULTIVITAMINS [Concomitant]
     Dosage: UNKNOWN
     Route: 065

REACTIONS (5)
  - Bronchopneumonia [Unknown]
  - Asthma [Unknown]
  - Malaise [Unknown]
  - Swelling [Unknown]
  - Fall [Unknown]
